FAERS Safety Report 10744084 (Version 1)
Quarter: 2015Q1

REPORT INFORMATION
  Report Type: Spontaneous
  Country: US (occurrence: None)
  Receive Date: 20150123
  Receipt Date: 20150123
  Transmission Date: 20150721
  Serious: Yes (Life-Threatening)
  Sender: FDA-Public Use
  Company Number: None

PATIENT
  Age: 56 Year
  Sex: Female
  Weight: 68.04 kg

DRUGS (3)
  1. GABAPENTIN 400MG [Suspect]
     Active Substance: GABAPENTIN
     Indication: AORTIC OCCLUSION
     Dosage: 2 PILLS TWICE A DAY TWICE DAILY TAKEN BY MOUTH
     Route: 048
     Dates: start: 20140515, end: 20140612
  2. GABAPENTIN 400MG [Suspect]
     Active Substance: GABAPENTIN
     Indication: NERVE INJURY
     Dosage: 2 PILLS TWICE A DAY TWICE DAILY TAKEN BY MOUTH
     Route: 048
     Dates: start: 20140515, end: 20140612
  3. GABAPENTIN 400MG [Suspect]
     Active Substance: GABAPENTIN
     Indication: ANOXIA
     Dosage: 2 PILLS TWICE A DAY TWICE DAILY TAKEN BY MOUTH
     Route: 048
     Dates: start: 20140515, end: 20140612

REACTIONS (5)
  - Memory impairment [None]
  - Legal problem [None]
  - Abnormal behaviour [None]
  - Blood alcohol increased [None]
  - Loss of consciousness [None]

NARRATIVE: CASE EVENT DATE: 20140612
